FAERS Safety Report 8020989-1 (Version None)
Quarter: 2011Q4

REPORT INFORMATION
  Report Type: 
  Country: None (occurrence: None)
  Receive Date: 20111230
  Receipt Date: 20111230
  Transmission Date: 20120403
  Serious: Yes (Other)
  Sender: FDA-Public Use
  Company Number: None

PATIENT
  Age: 25 Year
  Sex: Female
  Weight: 54.4316 kg

DRUGS (7)
  1. BERINERT [Suspect]
     Indication: HEREDITARY ANGIOEDEMA
     Dosage: 1000 UNITS PRN I.V.P.
     Route: 042
     Dates: start: 20111201, end: 20111226
  2. CORTEF [Concomitant]
  3. OXYGEN [Concomitant]
  4. HYDROXYZINE [Concomitant]
  5. BENADRYL [Concomitant]
  6. CINRYZE [Concomitant]
  7. EPINEPHRINE [Concomitant]

REACTIONS (2)
  - HEREDITARY ANGIOEDEMA [None]
  - CONDITION AGGRAVATED [None]
